FAERS Safety Report 11134243 (Version 4)
Quarter: 2015Q4

REPORT INFORMATION
  Report Type: Spontaneous
  Country: BR (occurrence: BR)
  Receive Date: 20150524
  Receipt Date: 20151006
  Transmission Date: 20160304
  Serious: Yes (Other)
  Sender: FDA-Public Use
  Company Number: BR-AMGEN-BRASP2015049479

PATIENT
  Age: 64 Year
  Sex: Male
  Weight: 70 kg

DRUGS (6)
  1. REUQUINOL [Concomitant]
     Active Substance: HYDROXYCHLOROQUINE SULFATE
     Dosage: UNK (STRENGTH 400MG)
     Dates: start: 20150801
  2. ENBREL [Suspect]
     Active Substance: ETANERCEPT
     Indication: RHEUMATOID ARTHRITIS
     Dosage: 1 ML, 1X/WEEK
     Route: 065
     Dates: start: 20150601
  3. METHOTREXATE SODIUM. [Concomitant]
     Active Substance: METHOTREXATE SODIUM
     Dosage: UNK (STRENGTH 2.5MG)
     Dates: start: 20150601
  4. PREDNISONE. [Concomitant]
     Active Substance: PREDNISONE
     Dosage: UNK (STRENGTH 5MG)
     Dates: start: 20150601
  5. MIOFLEX A [Concomitant]
     Dosage: UNK
     Dates: start: 20150801
  6. CAPTOPRIL. [Concomitant]
     Active Substance: CAPTOPRIL
     Indication: HYPERTENSION
     Dosage: UNK
     Dates: start: 20120101

REACTIONS (16)
  - Abasia [Not Recovered/Not Resolved]
  - Dysstasia [Recovered/Resolved]
  - Condition aggravated [Not Recovered/Not Resolved]
  - Hypersomnia [Not Recovered/Not Resolved]
  - Acne [Not Recovered/Not Resolved]
  - Rheumatic disorder [Not Recovered/Not Resolved]
  - Influenza [Recovered/Resolved]
  - Sluggishness [Not Recovered/Not Resolved]
  - Pruritus [Not Recovered/Not Resolved]
  - Wound [Not Recovered/Not Resolved]
  - Sleep disorder [Not Recovered/Not Resolved]
  - Pruritus generalised [Not Recovered/Not Resolved]
  - Back pain [Not Recovered/Not Resolved]
  - Hypotonia [Not Recovered/Not Resolved]
  - Eating disorder [Not Recovered/Not Resolved]
  - Pain [Not Recovered/Not Resolved]

NARRATIVE: CASE EVENT DATE: 2015
